FAERS Safety Report 10876705 (Version 2)
Quarter: 2015Q1

REPORT INFORMATION
  Report Type: Spontaneous
  Country: FR (occurrence: FR)
  Receive Date: 20150302
  Receipt Date: 20150312
  Transmission Date: 20150721
  Serious: Yes (Hospitalization, Other)
  Sender: FDA-Public Use
  Company Number: FR-UCBSA-2015005352

PATIENT
  Age: 52 Year
  Sex: Male

DRUGS (4)
  1. KEPPRA [Suspect]
     Active Substance: LEVETIRACETAM
     Indication: PRODUCT USED FOR UNKNOWN INDICATION
     Dosage: 500 MG, 2X/DAY (BID)
     Route: 048
     Dates: start: 20150102, end: 20150125
  2. TAZOCILLINE [Suspect]
     Active Substance: PIPERACILLIN SODIUM\TAZOBACTAM SODIUM
     Indication: SEPTIC ENCEPHALOPATHY
  3. TAZOCILLINE [Suspect]
     Active Substance: PIPERACILLIN SODIUM\TAZOBACTAM SODIUM
     Indication: BACTERIAL PROSTATITIS
     Dosage: 4 G, 3X/DAY (TID)
     Route: 042
     Dates: start: 20150102, end: 20150123
  4. CIFLOX [Suspect]
     Active Substance: CIPROFLOXACIN
     Indication: PRODUCT USED FOR UNKNOWN INDICATION
     Dosage: 400 MG, 2X/DAY (BID)
     Route: 042
     Dates: start: 20150102, end: 20150123

REACTIONS (1)
  - Agranulocytosis [Recovered/Resolved]

NARRATIVE: CASE EVENT DATE: 20150123
